FAERS Safety Report 14223643 (Version 1)
Quarter: 2017Q4

REPORT INFORMATION
  Report Type: Report from Study
  Country: CA (occurrence: CA)
  Receive Date: 20171124
  Receipt Date: 20171124
  Transmission Date: 20180321
  Serious: Yes (Death)
  Sender: FDA-Public Use
  Company Number: PHHY2010CA43834

PATIENT
  Sex: Female

DRUGS (2)
  1. SANDOSTATIN [Suspect]
     Active Substance: OCTREOTIDE ACETATE
     Indication: CARCINOID SYNDROME
     Dosage: 150 UG, BID
     Route: 058
  2. SANDOSTATIN LAR DEPOT [Suspect]
     Active Substance: OCTREOTIDE ACETATE
     Indication: CARCINOID TUMOUR
     Dosage: 20 MG, QMO
     Route: 030
     Dates: start: 20100706

REACTIONS (7)
  - Injection site pruritus [Unknown]
  - Faeces discoloured [Unknown]
  - Injection site reaction [Unknown]
  - Drug intolerance [Unknown]
  - Injection site oedema [Unknown]
  - Death [Fatal]
  - Injection site pain [Unknown]

NARRATIVE: CASE EVENT DATE: 2017
